FAERS Safety Report 10883180 (Version 1)
Quarter: 2015Q1

REPORT INFORMATION
  Report Type: Spontaneous
  Country: US (occurrence: None)
  Receive Date: 20150226
  Receipt Date: 20150226
  Transmission Date: 20150721
  Serious: Yes (Life-Threatening, Hospitalization, Disabling)
  Sender: FDA-Public Use
  Company Number: None

PATIENT
  Age: 38 Year
  Weight: 72.58 kg

DRUGS (1)
  1. OPANA [Suspect]
     Active Substance: OXYMORPHONE HYDROCHLORIDE
     Indication: DRUG ABUSER

REACTIONS (6)
  - Haemorrhage [None]
  - Thrombotic thrombocytopenic purpura [None]
  - Drug abuse [None]
  - Dialysis [None]
  - Angiopathy [None]
  - Thrombosis [None]

NARRATIVE: CASE EVENT DATE: 20150108
